FAERS Safety Report 8019354-2 (Version None)
Quarter: 2012Q1

REPORT INFORMATION
  Report Type: 
  Country: None (occurrence: None)
  Receive Date: 20120103
  Receipt Date: 20111223
  Transmission Date: 20120608
  Serious: Yes (Hospitalization)
  Sender: FDA-Public Use
  Company Number: US-ACTELION-A-US2011-57970

PATIENT

DRUGS (7)
  1. TRACLEER [Suspect]
     Indication: PULMONARY ARTERIAL HYPERTENSION
     Dosage: UNK
     Route: 048
     Dates: start: 20110228
  2. REMODULIN [Concomitant]
  3. REVATIO [Concomitant]
  4. OXYGEN [Concomitant]
  5. COUMADIN [Concomitant]
  6. ENOXAPARIN [Concomitant]
  7. XANAX [Suspect]

REACTIONS (7)
  - MENTAL STATUS CHANGES [None]
  - INSOMNIA [None]
  - INTERNATIONAL NORMALISED RATIO INCREASED [None]
  - DISORIENTATION [None]
  - INJECTION SITE PAIN [None]
  - DIZZINESS [None]
  - SYNCOPE [None]
